FAERS Safety Report 25525791 (Version 1)
Quarter: 2025Q3

REPORT INFORMATION
  Report Type: Spontaneous
  Country: CA (occurrence: CA)
  Receive Date: 20250707
  Receipt Date: 20250707
  Transmission Date: 20251020
  Serious: Yes (Life-Threatening, Hospitalization, Disabling, Other)
  Sender: BRISTOL-MYERS SQUIBB COMPANY
  Company Number: CA-BRISTOL-MYERS SQUIBB COMPANY-2025-094516

PATIENT
  Age: 40 Year
  Sex: Female
  Weight: 96 kg

DRUGS (281)
  1. ORENCIA [Suspect]
     Active Substance: ABATACEPT
     Indication: Rheumatoid arthritis
  2. ORENCIA [Suspect]
     Active Substance: ABATACEPT
  3. ORENCIA [Suspect]
     Active Substance: ABATACEPT
  4. ORENCIA [Suspect]
     Active Substance: ABATACEPT
  5. TRIAMCINOLONE ACETONIDE [Suspect]
     Active Substance: TRIAMCINOLONE ACETONIDE
     Indication: Product used for unknown indication
     Route: 013
  6. TRIAMCINOLONE ACETONIDE [Suspect]
     Active Substance: TRIAMCINOLONE ACETONIDE
     Route: 013
  7. TRIAMCINOLONE ACETONIDE [Suspect]
     Active Substance: TRIAMCINOLONE ACETONIDE
  8. TRIAMCINOLONE ACETONIDE [Suspect]
     Active Substance: TRIAMCINOLONE ACETONIDE
  9. TRIAMCINOLONE ACETONIDE [Suspect]
     Active Substance: TRIAMCINOLONE ACETONIDE
  10. ACETAMINOPHEN [Concomitant]
     Active Substance: ACETAMINOPHEN
     Indication: Product used for unknown indication
  11. ACETAMINOPHEN AND CODEINE [Concomitant]
     Active Substance: ACETAMINOPHEN\CODEINE PHOSPHATE
     Indication: Product used for unknown indication
  12. ACTEMRA [Concomitant]
     Active Substance: TOCILIZUMAB
     Indication: Product used for unknown indication
  13. ALENDRONATE SODIUM [Concomitant]
     Active Substance: ALENDRONATE SODIUM
     Indication: Rheumatoid arthritis
     Route: 048
  14. ALENDRONATE SODIUM [Concomitant]
     Active Substance: ALENDRONATE SODIUM
  15. ALENDRONATE SODIUM [Concomitant]
     Active Substance: ALENDRONATE SODIUM
  16. ALENDRONATE SODIUM [Concomitant]
     Active Substance: ALENDRONATE SODIUM
  17. ALENDRONATE SODIUM [Concomitant]
     Active Substance: ALENDRONATE SODIUM
     Route: 048
  18. LEFLUNOMIDE [Concomitant]
     Active Substance: LEFLUNOMIDE
     Indication: Product used for unknown indication
  19. PREDNISONE [Concomitant]
     Active Substance: PREDNISONE
     Indication: Product used for unknown indication
     Route: 048
  20. ARAVA [Concomitant]
     Active Substance: LEFLUNOMIDE
     Indication: Product used for unknown indication
  21. AZATHIOPRINE [Concomitant]
     Active Substance: AZATHIOPRINE
     Indication: Product used for unknown indication
  22. AZATHIOPRINE [Concomitant]
     Active Substance: AZATHIOPRINE
  23. BERINERT [Concomitant]
     Active Substance: HUMAN C1-ESTERASE INHIBITOR
     Indication: Product used for unknown indication
  24. BOTULINUM TOXIN TYPE A [Concomitant]
     Active Substance: BOTULINUM TOXIN TYPE A
     Indication: Product used for unknown indication
  25. BUTRANS [Concomitant]
     Active Substance: BUPRENORPHINE
     Indication: Product used for unknown indication
  26. CALCIUM ASCORBATE [Concomitant]
     Active Substance: CALCIUM ASCORBATE
     Indication: Product used for unknown indication
  27. CALCIUM CARBONATE [Concomitant]
     Active Substance: CALCIUM CARBONATE
     Indication: Product used for unknown indication
  28. CALCIUM CARBONATE\CHOLECALCIFEROL [Concomitant]
     Active Substance: CALCIUM CARBONATE\CHOLECALCIFEROL
     Indication: Product used for unknown indication
  29. CALCIUM CITRATE [Concomitant]
     Active Substance: CALCIUM CITRATE
     Indication: Product used for unknown indication
  30. CALCIUM GLUBIONATE [Concomitant]
     Active Substance: CALCIUM GLUBIONATE
     Indication: Product used for unknown indication
  31. CANDESARTAN [Concomitant]
     Active Substance: CANDESARTAN
     Indication: Migraine
     Route: 048
  32. CELECOXIB [Concomitant]
     Active Substance: CELECOXIB
     Indication: Product used for unknown indication
  33. CETIRIZINE [Concomitant]
     Active Substance: CETIRIZINE HYDROCHLORIDE
     Indication: Product used for unknown indication
  34. CETIRIZINE HYDROCHLORIDE [Concomitant]
     Active Substance: CETIRIZINE HYDROCHLORIDE
     Indication: Rheumatoid arthritis
  35. CETIRIZINE HYDROCHLORIDE [Concomitant]
     Active Substance: CETIRIZINE HYDROCHLORIDE
  36. CETIRIZINE HYDROCHLORIDE [Concomitant]
     Active Substance: CETIRIZINE HYDROCHLORIDE
  37. CHLORHEXIDINE GLUCONATE [Concomitant]
     Active Substance: CHLORHEXIDINE GLUCONATE
     Indication: Product used for unknown indication
  38. CHLORHEXIDINE GLUCONATE\ISOPROPYL ALCOHOL [Concomitant]
     Active Substance: CHLORHEXIDINE GLUCONATE\ISOPROPYL ALCOHOL
     Indication: Product used for unknown indication
  39. CIMZIA [Concomitant]
     Active Substance: CERTOLIZUMAB PEGOL
     Indication: Product used for unknown indication
  40. CORTISONE ACETATE [Concomitant]
     Active Substance: CORTISONE ACETATE
     Indication: Product used for unknown indication
  41. COSENTYX [Concomitant]
     Active Substance: SECUKINUMAB
     Indication: Psoriatic arthropathy
  42. COSENTYX [Concomitant]
     Active Substance: SECUKINUMAB
  43. COSENTYX [Concomitant]
     Active Substance: SECUKINUMAB
  44. COSENTYX [Concomitant]
     Active Substance: SECUKINUMAB
  45. COSENTYX [Concomitant]
     Active Substance: SECUKINUMAB
     Route: 048
  46. COSENTYX [Concomitant]
     Active Substance: SECUKINUMAB
     Route: 058
  47. CUPRIC OXIDE\FOLIC ACID\NIACIN\ZINC OXIDE [Concomitant]
     Active Substance: CUPRIC OXIDE\FOLIC ACID\NIACIN\ZINC OXIDE
     Indication: Product used for unknown indication
  48. DESOXIMETASONE [Concomitant]
     Active Substance: DESOXIMETASONE
     Indication: Product used for unknown indication
  49. DESOXIMETASONE [Concomitant]
     Active Substance: DESOXIMETASONE
  50. DICLOFENAC [Concomitant]
     Active Substance: DICLOFENAC
     Indication: Product used for unknown indication
  51. DICLOFENAC POTASSIUM [Concomitant]
     Active Substance: DICLOFENAC POTASSIUM
     Indication: Product used for unknown indication
  52. DICLOFENAC SODIUM [Concomitant]
     Active Substance: DICLOFENAC SODIUM
     Indication: Product used for unknown indication
  53. DOMPERIDONE MALEATE [Concomitant]
     Active Substance: DOMPERIDONE MALEATE
     Indication: Product used for unknown indication
  54. ENBREL [Concomitant]
     Active Substance: ETANERCEPT
     Indication: Product used for unknown indication
  55. ERELZI [Concomitant]
     Active Substance: ETANERCEPT-SZZS
     Indication: Rheumatoid arthritis
     Route: 058
  56. ERELZI [Concomitant]
     Active Substance: ETANERCEPT-SZZS
     Route: 058
  57. ERELZI [Concomitant]
     Active Substance: ETANERCEPT-SZZS
     Route: 058
  58. ERELZI [Concomitant]
     Active Substance: ETANERCEPT-SZZS
  59. ERELZI [Concomitant]
     Active Substance: ETANERCEPT-SZZS
     Route: 058
  60. ERELZI [Concomitant]
     Active Substance: ETANERCEPT-SZZS
  61. ERELZI [Concomitant]
     Active Substance: ETANERCEPT-SZZS
  62. ERENUMAB-AOOE [Concomitant]
     Active Substance: ERENUMAB-AOOE
     Indication: Migraine
     Route: 058
  63. ERGOCALCIFEROL [Concomitant]
     Active Substance: ERGOCALCIFEROL
     Indication: Product used for unknown indication
  64. FLUMETHASONE [Concomitant]
     Active Substance: FLUMETHASONE
     Indication: Product used for unknown indication
  65. FLUMETHASONE PIVALATE [Concomitant]
     Active Substance: FLUMETHASONE PIVALATE
     Indication: Product used for unknown indication
  66. FLUMETHASONE PIVALATE [Concomitant]
     Active Substance: FLUMETHASONE PIVALATE
  67. FOLIC ACID [Concomitant]
     Active Substance: FOLIC ACID
     Indication: Product used for unknown indication
  68. FOSAMAX [Concomitant]
     Active Substance: ALENDRONATE SODIUM
     Indication: Product used for unknown indication
  69. GOLD [Concomitant]
     Active Substance: GOLD
     Indication: Product used for unknown indication
  70. HAIR KERATIN AMINO ACIDS GOLD COMPLEX [Concomitant]
     Active Substance: HAIR KERATIN AMINO ACIDS GOLD COMPLEX
     Indication: Product used for unknown indication
  71. GOLD SODIUM THIOMALATE [Concomitant]
     Active Substance: GOLD SODIUM THIOMALATE
     Indication: Product used for unknown indication
  72. HYDROCORTISONE BUTYRATE [Concomitant]
     Active Substance: HYDROCORTISONE BUTYRATE
     Indication: Product used for unknown indication
  73. HYDROCORTISONE PROBUTATE [Concomitant]
     Active Substance: HYDROCORTISONE PROBUTATE
     Indication: Product used for unknown indication
  74. HYDROXYCHLOROQUINE [Concomitant]
     Active Substance: HYDROXYCHLOROQUINE
     Indication: Product used for unknown indication
  75. HYDROXYCHLOROQUINE SULFATE [Concomitant]
     Active Substance: HYDROXYCHLOROQUINE SULFATE
     Indication: Rheumatoid arthritis
  76. HYDROXYCHLOROQUINE SULFATE [Concomitant]
     Active Substance: HYDROXYCHLOROQUINE SULFATE
     Route: 048
  77. HYDROXYCHLOROQUINE SULFATE [Concomitant]
     Active Substance: HYDROXYCHLOROQUINE SULFATE
     Route: 058
  78. HYDROXYCHLOROQUINE SULFATE [Concomitant]
     Active Substance: HYDROXYCHLOROQUINE SULFATE
     Route: 048
  79. HYDROXYCHLOROQUINE SULFATE [Concomitant]
     Active Substance: HYDROXYCHLOROQUINE SULFATE
     Route: 013
  80. HYDROXYCHLOROQUINE SULFATE [Concomitant]
     Active Substance: HYDROXYCHLOROQUINE SULFATE
  81. HYRIMOZ [Concomitant]
     Active Substance: ADALIMUMAB-ADAZ
     Indication: Rheumatoid arthritis
     Route: 058
  82. HYRIMOZ [Concomitant]
     Active Substance: ADALIMUMAB-ADAZ
  83. HYRIMOZ [Concomitant]
     Active Substance: ADALIMUMAB-ADAZ
     Route: 058
  84. HYRIMOZ [Concomitant]
     Active Substance: ADALIMUMAB-ADAZ
     Route: 058
  85. HYRIMOZ [Concomitant]
     Active Substance: ADALIMUMAB-ADAZ
     Route: 058
  86. HYRIMOZ [Concomitant]
     Active Substance: ADALIMUMAB-ADAZ
  87. HYRIMOZ [Concomitant]
     Active Substance: ADALIMUMAB-ADAZ
     Route: 058
  88. HYRIMOZ [Concomitant]
     Active Substance: ADALIMUMAB-ADAZ
     Route: 058
  89. INFLIXIMAB [Concomitant]
     Active Substance: INFLIXIMAB
     Indication: Rheumatoid arthritis
  90. INFLIXIMAB [Concomitant]
     Active Substance: INFLIXIMAB
     Route: 042
  91. INFLIXIMAB [Concomitant]
     Active Substance: INFLIXIMAB
  92. INFLIXIMAB [Concomitant]
     Active Substance: INFLIXIMAB
  93. INFLIXIMAB [Concomitant]
     Active Substance: INFLIXIMAB
  94. INFLIXIMAB [Concomitant]
     Active Substance: INFLIXIMAB
  95. INFLIXIMAB [Concomitant]
     Active Substance: INFLIXIMAB
  96. INFLIXIMAB [Concomitant]
     Active Substance: INFLIXIMAB
  97. INFLIXIMAB [Concomitant]
     Active Substance: INFLIXIMAB
  98. INFLIXIMAB [Concomitant]
     Active Substance: INFLIXIMAB
  99. ISOPROPYL ALCOHOL [Concomitant]
     Active Substance: ISOPROPYL ALCOHOL
     Indication: Product used for unknown indication
  100. KEVZARA [Concomitant]
     Active Substance: SARILUMAB
     Indication: Product used for unknown indication
  101. LAMICTAL [Concomitant]
     Active Substance: LAMOTRIGINE
     Indication: Product used for unknown indication
  102. MAGNESIUM CITRATE [Concomitant]
     Active Substance: MAGNESIUM CITRATE
     Indication: Product used for unknown indication
  103. MAGNESIUM CITRATE [Concomitant]
     Active Substance: MAGNESIUM CITRATE
  104. MAGNESIUM CITRATE [Concomitant]
     Active Substance: MAGNESIUM CITRATE
  105. MAGNESIUM CITRATE [Concomitant]
     Active Substance: MAGNESIUM CITRATE
  106. MAGNESIUM CITRATE [Concomitant]
     Active Substance: MAGNESIUM CITRATE
  107. METFORMIN HYDROCHLORIDE [Concomitant]
     Active Substance: METFORMIN HYDROCHLORIDE
     Indication: Product used for unknown indication
  108. METHOTREXATE [Concomitant]
     Active Substance: METHOTREXATE
     Indication: Rheumatoid arthritis
     Route: 048
  109. METHOTREXATE [Concomitant]
     Active Substance: METHOTREXATE
     Route: 048
  110. METHOTREXATE [Concomitant]
     Active Substance: METHOTREXATE
     Route: 013
  111. METHOTREXATE [Concomitant]
     Active Substance: METHOTREXATE
  112. METHOTREXATE [Concomitant]
     Active Substance: METHOTREXATE
     Route: 048
  113. METHOTREXATE [Concomitant]
     Active Substance: METHOTREXATE
     Route: 048
  114. METHOTREXATE [Concomitant]
     Active Substance: METHOTREXATE
     Route: 058
  115. METHOTREXATE [Concomitant]
     Active Substance: METHOTREXATE
     Route: 048
  116. METHOTREXATE [Concomitant]
     Active Substance: METHOTREXATE
     Dosage: SOLUTION INTRA-ARTERIAL
     Route: 058
  117. METHOTREXATE [Concomitant]
     Active Substance: METHOTREXATE
     Route: 048
  118. METHYLPREDNISOLONE ACETATE [Concomitant]
     Active Substance: METHYLPREDNISOLONE ACETATE
     Indication: Rheumatoid arthritis
     Route: 058
  119. METHYLPREDNISOLONE ACETATE [Concomitant]
     Active Substance: METHYLPREDNISOLONE ACETATE
     Route: 048
  120. METHYLPREDNISOLONE ACETATE [Concomitant]
     Active Substance: METHYLPREDNISOLONE ACETATE
     Route: 048
  121. METHYLPREDNISOLONE SODIUM SUCCINATE [Concomitant]
     Active Substance: METHYLPREDNISOLONE SODIUM SUCCINATE
     Indication: Product used for unknown indication
  122. METHYLPREDNISOLONE SODIUM SUCCINATE [Concomitant]
     Active Substance: METHYLPREDNISOLONE SODIUM SUCCINATE
  123. MINOCYCLINE HYDROCHLORIDE [Concomitant]
     Active Substance: MINOCYCLINE HYDROCHLORIDE
     Indication: Product used for unknown indication
     Route: 048
  124. MINOCYCLINE HYDROCHLORIDE [Concomitant]
     Active Substance: MINOCYCLINE HYDROCHLORIDE
  125. MYOCHRYSINE [Concomitant]
     Active Substance: GOLD SODIUM THIOMALATE
     Indication: Rheumatoid arthritis
  126. MYOCHRYSINE [Concomitant]
     Active Substance: GOLD SODIUM THIOMALATE
  127. MYOCHRYSINE [Concomitant]
     Active Substance: GOLD SODIUM THIOMALATE
  128. MYOCHRYSINE [Concomitant]
     Active Substance: GOLD SODIUM THIOMALATE
  129. MYOCHRYSINE [Concomitant]
     Active Substance: GOLD SODIUM THIOMALATE
     Route: 048
  130. MYOCHRYSINE [Concomitant]
     Active Substance: GOLD SODIUM THIOMALATE
  131. MYOCHRYSINE [Concomitant]
     Active Substance: GOLD SODIUM THIOMALATE
  132. MYOCHRYSINE [Concomitant]
     Active Substance: GOLD SODIUM THIOMALATE
  133. MYOCHRYSINE [Concomitant]
     Active Substance: GOLD SODIUM THIOMALATE
     Route: 048
  134. MYOCHRYSINE [Concomitant]
     Active Substance: GOLD SODIUM THIOMALATE
  135. MYOCHRYSINE [Concomitant]
     Active Substance: GOLD SODIUM THIOMALATE
  136. MYOCHRYSINE [Concomitant]
     Active Substance: GOLD SODIUM THIOMALATE
  137. MYOCHRYSINE [Concomitant]
     Active Substance: GOLD SODIUM THIOMALATE
  138. MYOCHRYSINE [Concomitant]
     Active Substance: GOLD SODIUM THIOMALATE
  139. MYOCHRYSINE [Concomitant]
     Active Substance: GOLD SODIUM THIOMALATE
  140. MYOCHRYSINE [Concomitant]
     Active Substance: GOLD SODIUM THIOMALATE
  141. MYOCHRYSINE [Concomitant]
     Active Substance: GOLD SODIUM THIOMALATE
  142. MYOCHRYSINE [Concomitant]
     Active Substance: GOLD SODIUM THIOMALATE
  143. MYOCHRYSINE [Concomitant]
     Active Substance: GOLD SODIUM THIOMALATE
  144. MYRBETRIQ [Concomitant]
     Active Substance: MIRABEGRON
     Indication: Rheumatoid arthritis
  145. NAPROXEN [Concomitant]
     Active Substance: NAPROXEN
     Indication: Product used for unknown indication
     Route: 048
  146. NAPROXEN [Concomitant]
     Active Substance: NAPROXEN
  147. NAPROXEN [Concomitant]
     Active Substance: NAPROXEN
     Route: 048
  148. NAPROXEN [Concomitant]
     Active Substance: NAPROXEN
     Route: 048
  149. NAPROXEN [Concomitant]
     Active Substance: NAPROXEN
     Route: 048
  150. NAPROXEN SODIUM [Concomitant]
     Active Substance: NAPROXEN SODIUM
     Indication: Product used for unknown indication
  151. NUCALA [Concomitant]
     Active Substance: MEPOLIZUMAB
     Indication: Product used for unknown indication
  152. NUCALA [Concomitant]
     Active Substance: MEPOLIZUMAB
     Route: 048
  153. NUCALA [Concomitant]
     Active Substance: MEPOLIZUMAB
     Route: 048
  154. NUCALA [Concomitant]
     Active Substance: MEPOLIZUMAB
  155. NUCALA [Concomitant]
     Active Substance: MEPOLIZUMAB
  156. NUCALA [Concomitant]
     Active Substance: MEPOLIZUMAB
     Route: 048
  157. NUCALA [Concomitant]
     Active Substance: MEPOLIZUMAB
     Route: 048
  158. NUCALA [Concomitant]
     Active Substance: MEPOLIZUMAB
     Route: 048
  159. NUCALA [Concomitant]
     Active Substance: MEPOLIZUMAB
     Route: 048
  160. NUCALA [Concomitant]
     Active Substance: MEPOLIZUMAB
     Route: 048
  161. NUCALA [Concomitant]
     Active Substance: MEPOLIZUMAB
     Route: 048
  162. NUCALA [Concomitant]
     Active Substance: MEPOLIZUMAB
     Route: 048
  163. NUCALA [Concomitant]
     Active Substance: MEPOLIZUMAB
     Route: 048
  164. NUCALA [Concomitant]
     Active Substance: MEPOLIZUMAB
     Route: 048
  165. NUCALA [Concomitant]
     Active Substance: MEPOLIZUMAB
     Route: 048
  166. NUCALA [Concomitant]
     Active Substance: MEPOLIZUMAB
     Route: 048
  167. NUCALA [Concomitant]
     Active Substance: MEPOLIZUMAB
  168. NUCALA [Concomitant]
     Active Substance: MEPOLIZUMAB
     Route: 048
  169. NUCALA [Concomitant]
     Active Substance: MEPOLIZUMAB
     Route: 048
  170. NUCALA [Concomitant]
     Active Substance: MEPOLIZUMAB
  171. NUCALA [Concomitant]
     Active Substance: MEPOLIZUMAB
  172. NUCALA [Concomitant]
     Active Substance: MEPOLIZUMAB
  173. NUCALA [Concomitant]
     Active Substance: MEPOLIZUMAB
  174. OTEZLA [Concomitant]
     Active Substance: APREMILAST
     Indication: Product used for unknown indication
  175. OXYCODONE [Concomitant]
     Active Substance: OXYCODONE
     Indication: Product used for unknown indication
  176. OXYCODONE [Concomitant]
     Active Substance: OXYCODONE
  177. PHTHALYLSULFATHIAZOLE [Concomitant]
     Active Substance: PHTHALYLSULFATHIAZOLE
     Indication: Rheumatoid arthritis
     Route: 058
  178. PHTHALYLSULFATHIAZOLE [Concomitant]
     Active Substance: PHTHALYLSULFATHIAZOLE
     Route: 058
  179. PREDNISONE [Concomitant]
     Active Substance: PREDNISONE
     Indication: Rheumatoid arthritis
  180. PSEUDOEPHEDRINE [Concomitant]
     Active Substance: PSEUDOEPHEDRINE
     Indication: Product used for unknown indication
  181. PSEUDOEPHEDRINE HYDROCHLORIDE [Concomitant]
     Active Substance: PSEUDOEPHEDRINE HYDROCHLORIDE
     Indication: Rheumatoid arthritis
  182. PSEUDOEPHEDRINE HYDROCHLORIDE [Concomitant]
     Active Substance: PSEUDOEPHEDRINE HYDROCHLORIDE
     Route: 058
  183. PSEUDOEPHEDRINE HYDROCHLORIDE [Concomitant]
     Active Substance: PSEUDOEPHEDRINE HYDROCHLORIDE
  184. PSEUDOEPHEDRINE HYDROCHLORIDE [Concomitant]
     Active Substance: PSEUDOEPHEDRINE HYDROCHLORIDE
  185. PSEUDOEPHEDRINE HYDROCHLORIDE [Concomitant]
     Active Substance: PSEUDOEPHEDRINE HYDROCHLORIDE
     Route: 058
  186. PSEUDOEPHEDRINE HYDROCHLORIDE [Concomitant]
     Active Substance: PSEUDOEPHEDRINE HYDROCHLORIDE
     Route: 058
  187. PSEUDOEPHEDRINE HYDROCHLORIDE [Concomitant]
     Active Substance: PSEUDOEPHEDRINE HYDROCHLORIDE
     Route: 058
  188. PSEUDOEPHEDRINE HYDROCHLORIDE [Concomitant]
     Active Substance: PSEUDOEPHEDRINE HYDROCHLORIDE
     Route: 058
  189. PSEUDOEPHEDRINE HYDROCHLORIDE [Concomitant]
     Active Substance: PSEUDOEPHEDRINE HYDROCHLORIDE
  190. PSEUDOEPHEDRINE HYDROCHLORIDE [Concomitant]
     Active Substance: PSEUDOEPHEDRINE HYDROCHLORIDE
  191. PSEUDOEPHEDRINE HYDROCHLORIDE [Concomitant]
     Active Substance: PSEUDOEPHEDRINE HYDROCHLORIDE
  192. PSEUDOEPHEDRINE HYDROCHLORIDE [Concomitant]
     Active Substance: PSEUDOEPHEDRINE HYDROCHLORIDE
  193. RAMIPRIL [Concomitant]
     Active Substance: RAMIPRIL
     Indication: Product used for unknown indication
     Route: 016
  194. RANITIDINE HYDROCHLORIDE [Concomitant]
     Active Substance: RANITIDINE HYDROCHLORIDE
     Indication: Product used for unknown indication
     Route: 042
  195. RANITIDINE HYDROCHLORIDE [Concomitant]
     Active Substance: RANITIDINE HYDROCHLORIDE
  196. RANITIDINE HYDROCHLORIDE [Concomitant]
     Active Substance: RANITIDINE HYDROCHLORIDE
  197. RANITIDINE HYDROCHLORIDE [Concomitant]
     Active Substance: RANITIDINE HYDROCHLORIDE
  198. RANITIDINE HYDROCHLORIDE [Concomitant]
     Active Substance: RANITIDINE HYDROCHLORIDE
  199. REMICADE [Concomitant]
     Active Substance: INFLIXIMAB
     Indication: Product used for unknown indication
  200. RITUXIMAB [Concomitant]
     Active Substance: RITUXIMAB
     Indication: Rheumatoid arthritis
     Route: 042
  201. RITUXIMAB [Concomitant]
     Active Substance: RITUXIMAB
     Route: 042
  202. RITUXIMAB [Concomitant]
     Active Substance: RITUXIMAB
  203. RITUXIMAB [Concomitant]
     Active Substance: RITUXIMAB
     Route: 042
  204. RITUXIMAB [Concomitant]
     Active Substance: RITUXIMAB
     Route: 042
  205. RITUXIMAB [Concomitant]
     Active Substance: RITUXIMAB
  206. RITUXIMAB [Concomitant]
     Active Substance: RITUXIMAB
  207. RITUXIMAB [Concomitant]
     Active Substance: RITUXIMAB
  208. RITUXIMAB [Concomitant]
     Active Substance: RITUXIMAB
  209. RITUXIMAB [Concomitant]
     Active Substance: RITUXIMAB
  210. RITUXIMAB [Concomitant]
     Active Substance: RITUXIMAB
  211. RITUXIMAB [Concomitant]
     Active Substance: RITUXIMAB
     Route: 042
  212. RITUXIMAB [Concomitant]
     Active Substance: RITUXIMAB
  213. RITUXIMAB [Concomitant]
     Active Substance: RITUXIMAB
     Route: 019
  214. RITUXIMAB [Concomitant]
     Active Substance: RITUXIMAB
  215. RITUXIMAB [Concomitant]
     Active Substance: RITUXIMAB
     Route: 016
  216. RITUXIMAB [Concomitant]
     Active Substance: RITUXIMAB
  217. RITUXIMAB [Concomitant]
     Active Substance: RITUXIMAB
  218. RITUXIMAB [Concomitant]
     Active Substance: RITUXIMAB
  219. RITUXIMAB [Concomitant]
     Active Substance: RITUXIMAB
  220. RITUXIMAB [Concomitant]
     Active Substance: RITUXIMAB
  221. RITUXIMAB [Concomitant]
     Active Substance: RITUXIMAB
     Route: 042
  222. RITUXIMAB [Concomitant]
     Active Substance: RITUXIMAB
     Route: 016
  223. RITUXIMAB [Concomitant]
     Active Substance: RITUXIMAB
     Route: 040
  224. RITUXIMAB [Concomitant]
     Active Substance: RITUXIMAB
  225. RITUXIMAB [Concomitant]
     Active Substance: RITUXIMAB
     Route: 042
  226. RITUXIMAB [Concomitant]
     Active Substance: RITUXIMAB
     Route: 040
  227. RITUXIMAB [Concomitant]
     Active Substance: RITUXIMAB
  228. RITUXIMAB [Concomitant]
     Active Substance: RITUXIMAB
     Route: 016
  229. RITUXIMAB [Concomitant]
     Active Substance: RITUXIMAB
     Route: 043
  230. RITUXIMAB [Concomitant]
     Active Substance: RITUXIMAB
     Route: 042
  231. RITUXIMAB [Concomitant]
     Active Substance: RITUXIMAB
     Route: 042
  232. RITUXIMAB [Concomitant]
     Active Substance: RITUXIMAB
     Route: 042
  233. RITUXIMAB [Concomitant]
     Active Substance: RITUXIMAB
     Route: 042
  234. SULFASALAZINE [Concomitant]
     Active Substance: SULFASALAZINE
     Indication: Rheumatoid arthritis
     Route: 058
  235. SULFASALAZINE [Concomitant]
     Active Substance: SULFASALAZINE
  236. SULFASALAZINE [Concomitant]
     Active Substance: SULFASALAZINE
  237. SULFASALAZINE [Concomitant]
     Active Substance: SULFASALAZINE
     Route: 048
  238. SULFASALAZINE [Concomitant]
     Active Substance: SULFASALAZINE
     Route: 048
  239. SULFASALAZINE [Concomitant]
     Active Substance: SULFASALAZINE
     Route: 058
  240. ATOMOXETINE HYDROCHLORIDE [Concomitant]
     Active Substance: ATOMOXETINE HYDROCHLORIDE
     Indication: Product used for unknown indication
  241. ATOMOXETINE HYDROCHLORIDE [Concomitant]
     Active Substance: ATOMOXETINE HYDROCHLORIDE
  242. DICLOFENAC SODIUM [Concomitant]
     Active Substance: DICLOFENAC SODIUM
     Indication: Product used for unknown indication
  243. HYDROCORTISONE [Concomitant]
     Active Substance: HYDROCORTISONE
     Indication: Product used for unknown indication
  244. LEFLUNOMIDE [Concomitant]
     Active Substance: LEFLUNOMIDE
     Indication: Rheumatoid arthritis
  245. LEFLUNOMIDE [Concomitant]
     Active Substance: LEFLUNOMIDE
     Route: 048
  246. LEFLUNOMIDE [Concomitant]
     Active Substance: LEFLUNOMIDE
  247. LEFLUNOMIDE [Concomitant]
     Active Substance: LEFLUNOMIDE
     Route: 048
  248. LEFLUNOMIDE [Concomitant]
     Active Substance: LEFLUNOMIDE
  249. LEFLUNOMIDE [Concomitant]
     Active Substance: LEFLUNOMIDE
  250. LEFLUNOMIDE [Concomitant]
     Active Substance: LEFLUNOMIDE
     Route: 048
  251. TOPIRAMATE [Concomitant]
     Active Substance: TOPIRAMATE
     Indication: Product used for unknown indication
  252. TOPIRAMATE [Concomitant]
     Active Substance: TOPIRAMATE
  253. SIMPONI [Concomitant]
     Active Substance: GOLIMUMAB
     Indication: Rheumatoid arthritis
     Route: 048
  254. SIRUKUMAB [Concomitant]
     Active Substance: SIRUKUMAB
     Indication: Rheumatoid arthritis
  255. SIRUKUMAB [Concomitant]
     Active Substance: SIRUKUMAB
     Indication: Prostatic specific antigen abnormal
     Route: 048
  256. GOLD SODIUM THIOMALATE [Concomitant]
     Active Substance: GOLD SODIUM THIOMALATE
     Indication: Product used for unknown indication
     Route: 016
  257. SULFAMETHOXAZOLE\TRIMETHOPRIM [Concomitant]
     Active Substance: SULFAMETHOXAZOLE\TRIMETHOPRIM
     Indication: Product used for unknown indication
  258. SULFASALAZINE [Concomitant]
     Active Substance: SULFASALAZINE
     Indication: Product used for unknown indication
  259. TOFACITINIB [Concomitant]
     Active Substance: TOFACITINIB
     Indication: Product used for unknown indication
  260. TRAMADOL HYDROCHLORIDE [Concomitant]
     Active Substance: TRAMADOL HYDROCHLORIDE
     Indication: Rheumatoid arthritis
  261. TRAMADOL HYDROCHLORIDE [Concomitant]
     Active Substance: TRAMADOL HYDROCHLORIDE
  262. VITAMIN C [Concomitant]
     Active Substance: ASCORBIC ACID
     Indication: Product used for unknown indication
  263. XELJANZ [Concomitant]
     Active Substance: TOFACITINIB CITRATE
     Indication: Product used for unknown indication
  264. XELJANZ [Concomitant]
     Active Substance: TOFACITINIB CITRATE
     Route: 048
  265. XELJANZ [Concomitant]
     Active Substance: TOFACITINIB CITRATE
  266. XELJANZ [Concomitant]
     Active Substance: TOFACITINIB CITRATE
  267. XELJANZ [Concomitant]
     Active Substance: TOFACITINIB CITRATE
  268. XELJANZ [Concomitant]
     Active Substance: TOFACITINIB CITRATE
  269. XELJANZ [Concomitant]
     Active Substance: TOFACITINIB CITRATE
  270. XELJANZ [Concomitant]
     Active Substance: TOFACITINIB CITRATE
  271. XELJANZ [Concomitant]
     Active Substance: TOFACITINIB CITRATE
  272. XELJANZ [Concomitant]
     Active Substance: TOFACITINIB CITRATE
  273. XELJANZ [Concomitant]
     Active Substance: TOFACITINIB CITRATE
  274. XELJANZ [Concomitant]
     Active Substance: TOFACITINIB CITRATE
  275. XELJANZ [Concomitant]
     Active Substance: TOFACITINIB CITRATE
  276. XELJANZ [Concomitant]
     Active Substance: TOFACITINIB CITRATE
  277. XELJANZ [Concomitant]
     Active Substance: TOFACITINIB CITRATE
  278. XELJANZ [Concomitant]
     Active Substance: TOFACITINIB CITRATE
  279. XELJANZ [Concomitant]
     Active Substance: TOFACITINIB CITRATE
     Route: 030
  280. XELJANZ [Concomitant]
     Active Substance: TOFACITINIB CITRATE
     Route: 030
  281. XELJANZ [Concomitant]
     Active Substance: TOFACITINIB CITRATE

REACTIONS (12)
  - C-reactive protein increased [Unknown]
  - Confusional state [Unknown]
  - Drug hypersensitivity [Unknown]
  - Onychomadesis [Unknown]
  - Peripheral venous disease [Unknown]
  - Sleep disorder [Unknown]
  - Swelling [Unknown]
  - Taste disorder [Unknown]
  - Weight increased [Unknown]
  - Wheezing [Unknown]
  - Hospitalisation [Unknown]
  - Adverse event [Unknown]
